FAERS Safety Report 12114103 (Version 1)
Quarter: 2016Q1

REPORT INFORMATION
  Report Type: Spontaneous
  Country: US (occurrence: None)
  Receive Date: 20160224
  Receipt Date: 20160224
  Transmission Date: 20160526
  Serious: No
  Sender: FDA-Public Use
  Company Number: None

PATIENT
  Age: 52 Year
  Sex: Female
  Weight: 78.93 kg

DRUGS (2)
  1. AMOXICILLIN. [Suspect]
     Active Substance: AMOXICILLIN
     Indication: TOOTH EXTRACTION
     Route: 048
  2. MULTI VITAMINS [Concomitant]

REACTIONS (5)
  - Paraesthesia [None]
  - Musculoskeletal pain [None]
  - Neck pain [None]
  - Hypoaesthesia [None]
  - Musculoskeletal stiffness [None]

NARRATIVE: CASE EVENT DATE: 20160220
